FAERS Safety Report 7033750-1 (Version None)
Quarter: 2010Q4

REPORT INFORMATION
  Report Type: 
  Country: None (occurrence: None)
  Receive Date: 20101007
  Receipt Date: 20100930
  Transmission Date: 20110411
  Serious: Yes (Other)
  Sender: FDA-Public Use
  Company Number: CA-ABBOTT-10P-028-0672550-00

PATIENT
  Sex: Female
  Weight: 48.124 kg

DRUGS (5)
  1. HUMIRA [Suspect]
     Indication: RHEUMATOID ARTHRITIS
     Route: 058
     Dates: start: 20070326
  2. LASIX [Concomitant]
     Indication: PRODUCT USED FOR UNKNOWN INDICATION
     Route: 048
  3. BISOPROLOL [Concomitant]
     Indication: ANGINA PECTORIS
     Route: 048
     Dates: start: 20070101
  4. NITROSPRAY [Concomitant]
     Indication: ANGINA PECTORIS
     Dosage: PRN
     Route: 060
     Dates: start: 20070101
  5. CELEBREX [Concomitant]
     Indication: ARTHRITIS
     Dosage: BID
     Route: 048

REACTIONS (2)
  - PNEUMONIA PRIMARY ATYPICAL [None]
  - POLYP [None]
